FAERS Safety Report 23915632 (Version 1)
Quarter: 2024Q2

REPORT INFORMATION
  Report Type: Spontaneous
  Country: CA (occurrence: CA)
  Receive Date: 20240529
  Receipt Date: 20240529
  Transmission Date: 20240716
  Serious: Yes (Life-Threatening, Hospitalization, Other)
  Sender: FDA-Public Use
  Company Number: CA-FreseniusKabi-FK202408204

PATIENT
  Age: 2 Year
  Sex: Male

DRUGS (6)
  1. ETOPOSIDE [Suspect]
     Active Substance: ETOPOSIDE
     Indication: Burkitt^s lymphoma
     Dosage: FORM: LIQUID INTRAVENOUS?ROUTE: INTRAVENOUS
  2. CYTARABINE [Suspect]
     Active Substance: CYTARABINE
     Indication: Burkitt^s lymphoma
     Dosage: SOLUTION INTRATHECAL?1 EVERY 12 HOURS?ROA: INTRAVENOUS
  3. CYTARABINE [Suspect]
     Active Substance: CYTARABINE
     Dosage: SOLUTION INTRATHECAL?1 EVERY 12 HOURS?ROA: INTRAVENOUS
  4. CYTARABINE [Suspect]
     Active Substance: CYTARABINE
     Dosage: SOLUTION INTRATHECAL?PMS-CYTARABINE SINGLE DOSE VIA?ROA: INTRAVENOUS
  5. TRUXIMA [Suspect]
     Active Substance: RITUXIMAB-ABBS
     Indication: Burkitt^s lymphoma
  6. TRUXIMA [Suspect]
     Active Substance: RITUXIMAB-ABBS
     Dosage: ONCE?SOLUTION INTRAVENOUS

REACTIONS (8)
  - Cough [Recovered/Resolved]
  - Enterovirus test positive [Recovered/Resolved]
  - Haemophilus test positive [Recovered/Resolved]
  - Human rhinovirus test positive [Recovered/Resolved]
  - Neutropenia [Recovered/Resolved]
  - Pyrexia [Recovered/Resolved]
  - Rhinorrhoea [Recovered/Resolved]
  - Febrile neutropenia [Recovered/Resolved]
